FAERS Safety Report 5193596-6 (Version None)
Quarter: 2006Q4

REPORT INFORMATION
  Report Type: 
  Country: None (occurrence: None)
  Receive Date: 20061228
  Receipt Date: 20061005
  Transmission Date: 20070319
  Serious: No
  Sender: FDA-Public Use
  Company Number: US-GLAXOSMITHKLINE-A0622629A

PATIENT
  Sex: Female

DRUGS (1)
  1. FLONASE [Suspect]
     Indication: SINUS HEADACHE
     Route: 045

REACTIONS (2)
  - DIZZINESS [None]
  - EXPIRED DRUG ADMINISTERED [None]
